FAERS Safety Report 8770124 (Version 1)
Quarter: 2012Q4

REPORT INFORMATION
  Report Type: 
  Country: FR (occurrence: FR)
  Receive Date: 20120906
  Receipt Date: 20120906
  Transmission Date: 20130627
  Serious: Yes (Hospitalization)
  Sender: FDA-Public Use
  Company Number: FR-PFIZER INC-2012214634

PATIENT
  Age: 70 Year
  Sex: Male

DRUGS (7)
  1. VFEND [Suspect]
     Indication: ASPERGILLOSIS
     Dosage: UNK
     Dates: start: 20110211, end: 20110313
  2. CORDARONE [Concomitant]
     Dosage: 200 mg, 1x/day
  3. COTAREG [Concomitant]
     Dosage: 80 mg, 1x/day
  4. ELISOR [Concomitant]
     Dosage: 1 DF, 1x/day
  5. AVODART [Concomitant]
     Dosage: 1 DF, 1x/day
  6. CASODEX [Concomitant]
     Dosage: 1 DF, 1x/day
  7. PREVISCAN [Concomitant]

REACTIONS (2)
  - Communication disorder [Recovered/Resolved]
  - Disturbance in attention [Recovered/Resolved]
